FAERS Safety Report 18300172 (Version 2)
Quarter: 2020Q3

REPORT INFORMATION
  Report Type: Spontaneous
  Country: GB (occurrence: GB)
  Receive Date: 20200923
  Receipt Date: 20200930
  Transmission Date: 20201103
  Serious: Yes (Life-Threatening, Hospitalization, Other)
  Sender: FDA-Public Use
  Company Number: GB-EMCURE PHARMACEUTICALS LTD-2020-EPL-001343

PATIENT
  Age: 62 Year
  Sex: Male

DRUGS (1)
  1. VERAPAMIL [Suspect]
     Active Substance: VERAPAMIL HYDROCHLORIDE
     Dosage: UNK

REACTIONS (16)
  - Brain injury [Unknown]
  - Blood pressure systolic decreased [Unknown]
  - Respiratory acidosis [Recovered/Resolved]
  - Hepatotoxicity [Unknown]
  - Dyspnoea [Unknown]
  - Hypocalcaemia [Recovered/Resolved]
  - Somnolence [Unknown]
  - Overdose [Unknown]
  - Toxicity to various agents [Unknown]
  - Metabolic acidosis [Recovered/Resolved]
  - Abdominal pain upper [Unknown]
  - Alanine aminotransferase increased [Unknown]
  - Chronic obstructive pulmonary disease [Recovered/Resolved]
  - Drug level increased [Unknown]
  - Bradycardia [Recovered/Resolved]
  - Cardiac arrest [Recovered/Resolved]
